FAERS Safety Report 20077702 (Version 2)
Quarter: 2021Q4

REPORT INFORMATION
  Report Type: Report from Study
  Country: US (occurrence: US)
  Receive Date: 20211116
  Receipt Date: 20211121
  Transmission Date: 20220303
  Serious: Yes (Other)
  Sender: FDA-Public Use
  Company Number: US-ABBVIE-21K-163-4110805-00

PATIENT
  Sex: Male

DRUGS (27)
  1. HUMIRA [Suspect]
     Active Substance: ADALIMUMAB
     Indication: Crohn^s disease
     Dosage: CITRATE FREE
     Route: 058
     Dates: end: 2015
  2. HUMIRA [Suspect]
     Active Substance: ADALIMUMAB
     Dosage: CITRATE FREE
     Route: 058
     Dates: start: 2016
  3. UBIQUINOL [Concomitant]
     Active Substance: UBIQUINOL
     Indication: Supplementation therapy
  4. LISINOPRIL [Concomitant]
     Active Substance: LISINOPRIL
     Indication: Hypertension
  5. PANTOPRAZOLE [Concomitant]
     Active Substance: PANTOPRAZOLE
     Indication: Gastrooesophageal reflux disease
  6. METHYLFOLAT [Concomitant]
     Indication: Vitamin supplementation
  7. MYRBETRIQ [Concomitant]
     Active Substance: MIRABEGRON
     Indication: Micturition disorder
  8. MYRBETRIQ [Concomitant]
     Active Substance: MIRABEGRON
     Indication: Prostatic disorder
  9. VITAMIN D3 K2 [Concomitant]
     Indication: Supplementation therapy
  10. ZINC PLUS [Concomitant]
     Indication: Supplementation therapy
  11. ASTAXANTHIN [Concomitant]
     Active Substance: ASTAXANTHIN
     Indication: Supplementation therapy
  12. L-GLUTAMINE [Concomitant]
     Indication: Supplementation therapy
  13. LITHIUM OROTATE [Concomitant]
     Active Substance: LITHIUM OROTATE
     Indication: Supplementation therapy
  14. LORATADINE [Concomitant]
     Active Substance: LORATADINE
     Indication: Hypersensitivity
  15. HEMP [Concomitant]
     Active Substance: HEMP
     Indication: Pain
  16. OXYCODONE [Concomitant]
     Active Substance: OXYCODONE
     Indication: Pain
  17. TYLENO [Concomitant]
     Indication: Pain
  18. TAMSULOSIN [Concomitant]
     Active Substance: TAMSULOSIN
     Indication: Micturition disorder
  19. TAMSULOSIN [Concomitant]
     Active Substance: TAMSULOSIN
     Indication: Prostatic disorder
  20. ASPIRIN [Concomitant]
     Active Substance: ASPIRIN
     Indication: Coronary arterial stent insertion
  21. VOLTAREN [Concomitant]
     Active Substance: DICLOFENAC SODIUM
     Indication: Pain
     Route: 061
  22. GABAPENTIN [Concomitant]
     Active Substance: GABAPENTIN
     Indication: Neuropathy peripheral
  23. CANNABIS SATIVA SUBSP. INDICA TOP [Concomitant]
     Active Substance: CANNABIS SATIVA SUBSP. INDICA TOP
     Indication: Pain
  24. METHYLCOBALAMIN [Concomitant]
     Active Substance: METHYLCOBALAMIN
     Indication: Vitamin B12
     Route: 060
  25. HERBALS [Concomitant]
     Active Substance: HERBALS
     Indication: Supplementation therapy
  26. MODERNA COVID-19 VACCINE [Concomitant]
     Active Substance: CX-024414
     Indication: COVID-19 immunisation
     Route: 030
     Dates: start: 20210315, end: 20210315
  27. MODERNA COVID-19 VACCINE [Concomitant]
     Active Substance: CX-024414
     Route: 030
     Dates: start: 20210426, end: 20210426

REACTIONS (6)
  - Cardiac pacemaker insertion [Recovering/Resolving]
  - Loss of consciousness [Recovered/Resolved]
  - Post procedural complication [Unknown]
  - Fistula [Recovered/Resolved]
  - Heart rate decreased [Recovering/Resolving]
  - Anaemia [Not Recovered/Not Resolved]

NARRATIVE: CASE EVENT DATE: 20150101
